FAERS Safety Report 16208791 (Version 1)
Quarter: 2019Q2

REPORT INFORMATION
  Report Type: Spontaneous
  Country: CA (occurrence: CA)
  Receive Date: 20190417
  Receipt Date: 20190417
  Transmission Date: 20190711
  Serious: Yes (Life-Threatening)
  Sender: FDA-Public Use
  Company Number: CA-BAYER-2019-076756

PATIENT
  Age: 23 Year
  Sex: Female
  Weight: 61.2 kg

DRUGS (1)
  1. YASMIN [Suspect]
     Active Substance: DROSPIRENONE\ETHINYL ESTRADIOL
     Indication: CHEMICAL CONTRACEPTION
     Dosage: UNK
     Route: 048

REACTIONS (2)
  - Left ventricular enlargement [Recovered/Resolved]
  - Hypertension [Recovered/Resolved]
